FAERS Safety Report 16943423 (Version 1)
Quarter: 2019Q4

REPORT INFORMATION
  Report Type: Spontaneous
  Country: US (occurrence: US)
  Receive Date: 20191022
  Receipt Date: 20191022
  Transmission Date: 20200122
  Serious: No
  Sender: FDA-Public Use
  Company Number: US-JNJFOC-20191027662

PATIENT
  Age: 5 Year
  Sex: Female
  Weight: 18.16 kg

DRUGS (1)
  1. CHILDRENS MOTRIN [Suspect]
     Active Substance: IBUPROFEN
     Indication: PYREXIA
     Dosage: 6ML ONCE ONLY
     Route: 048
     Dates: start: 20191012, end: 20191012

REACTIONS (3)
  - Rash [Recovered/Resolved]
  - Expired product administered [Unknown]
  - Incorrect dose administered [Unknown]

NARRATIVE: CASE EVENT DATE: 20191012
